FAERS Safety Report 8605537-7 (Version None)
Quarter: 2012Q3

REPORT INFORMATION
  Report Type: 
  Country: None (occurrence: None)
  Receive Date: 20120820
  Receipt Date: 20120807
  Transmission Date: 20120928
  Serious: Yes (Hospitalization)
  Sender: FDA-Public Use
  Company Number: FR-FRI-1000037846

PATIENT
  Sex: Female

DRUGS (7)
  1. VITAMIN B-12 [Concomitant]
     Route: 048
  2. ESCITALOPRAM [Suspect]
     Indication: DEPRESSION
     Dosage: 10 MG
     Route: 048
     Dates: end: 20120405
  3. ERGOCALCIFEROL [Concomitant]
  4. LEVOTHYROXINE SODIUM [Concomitant]
     Indication: HYPOTHYROIDISM
     Route: 048
  5. SPIRONOLACTONE [Suspect]
     Indication: HYPERTENSION
     Dosage: 1 DF
     Route: 048
     Dates: end: 20120405
  6. CORDARONE [Concomitant]
     Indication: ARRHYTHMIA
     Route: 048
  7. LERCANIDIPINE [Concomitant]

REACTIONS (2)
  - HYPONATRAEMIA [None]
  - DRUG INTERACTION [None]
